FAERS Safety Report 8962514 (Version 3)
Quarter: 2013Q2

REPORT INFORMATION
  Report Type: Report from Study
  Country: PL (occurrence: PL)
  Receive Date: 20121213
  Receipt Date: 20130618
  Transmission Date: 20140414
  Serious: Yes (Death, Life-Threatening, Hospitalization)
  Sender: FDA-Public Use
  Company Number: PL-PFIZER INC-2012309942

PATIENT
  Age: 77 Year
  Sex: Female

DRUGS (6)
  1. SUNITINIB MALATE [Suspect]
     Indication: RENAL CELL CARCINOMA
     Dosage: CYCLIC
     Dates: start: 20120810, end: 20121125
  2. TULIP [Concomitant]
     Indication: HYPERTENSION
     Dosage: UNK
     Dates: start: 2007
  3. BISOCARD [Concomitant]
     Indication: HYPERTENSION
     Dosage: UNK
     Dates: start: 2007
  4. FORMETIC [Concomitant]
     Indication: DIABETES MELLITUS
     Dosage: UNK
     Dates: start: 2008
  5. VEROSPIRON [Concomitant]
     Indication: OEDEMA
     Dosage: UNK
     Dates: start: 20120910
  6. ENARENAL [Concomitant]
     Indication: HYPERTENSION
     Dosage: UNK
     Dates: start: 2007

REACTIONS (2)
  - Multi-organ failure [Fatal]
  - Shock [Fatal]
